FAERS Safety Report 9376966 (Version 1)
Quarter: 2013Q3

REPORT INFORMATION
  Report Type: Spontaneous
  Country: AR (occurrence: AR)
  Receive Date: 20130701
  Receipt Date: 20130701
  Transmission Date: 20140515
  Serious: Yes (Other)
  Sender: FDA-Public Use
  Company Number: PHHY2013AR067131

PATIENT
  Sex: 0

DRUGS (1)
  1. TRILEPTAL [Suspect]
     Dosage: UNK UKN, UNK
     Route: 065

REACTIONS (2)
  - Coeliac disease [Unknown]
  - Condition aggravated [Unknown]
